FAERS Safety Report 22526965 (Version 2)
Quarter: 2023Q2

REPORT INFORMATION
  Report Type: Spontaneous
  Country: IT (occurrence: IT)
  Receive Date: 20230606
  Receipt Date: 20230619
  Transmission Date: 20230721
  Serious: Yes (Hospitalization, Other)
  Sender: FDA-Public Use
  Company Number: None

PATIENT
  Age: 68 Year
  Sex: Female

DRUGS (1)
  1. ZOLPIDEM TARTRATE [Suspect]
     Active Substance: ZOLPIDEM TARTRATE
     Dosage: 50 MG, BID (5 TABS IN THE MORNING OF 18/02 AT 8, AND 5 TABS IN THE EVENING BEFORE 9 PM)
     Route: 065
     Dates: start: 20230218, end: 20230218

REACTIONS (5)
  - Bradyphrenia [Recovered/Resolved]
  - Toxicity to various agents [Recovering/Resolving]
  - Tachycardia [Recovered/Resolved]
  - Bradykinesia [Recovered/Resolved]
  - Drug abuse [Recovered/Resolved]

NARRATIVE: CASE EVENT DATE: 20230218
